FAERS Safety Report 12705680 (Version 1)
Quarter: 2016Q3

REPORT INFORMATION
  Report Type: Spontaneous
  Country: US (occurrence: None)
  Receive Date: 20160831
  Receipt Date: 20160831
  Transmission Date: 20161109
  Serious: Yes (Other)
  Sender: FDA-Public Use
  Company Number: None

PATIENT
  Age: 49 Year
  Sex: Female
  Weight: 68.04 kg

DRUGS (11)
  1. BACK N BODY PAIN [Concomitant]
  2. (ASSURED) ALL DAY PAIN RELIEF [Concomitant]
  3. OMEPRAZOLE DR [Suspect]
     Active Substance: OMEPRAZOLE
     Indication: GASTROOESOPHAGEAL REFLUX DISEASE
     Route: 048
     Dates: start: 20160705
  4. BACK N BODY PAIN [Concomitant]
  5. (ASSURED)  TENSION HEADACHE RELIEF MEDICINE [Concomitant]
  6. IMIPRAMINE HCL [Suspect]
     Active Substance: IMIPRAMINE HYDROCHLORIDE
     Indication: DEPRESSION
     Route: 048
     Dates: start: 20160722, end: 20160727
  7. EQUATE ONE DAILY WOMEN HEALTH [Concomitant]
  8. FOLIC ACID. [Concomitant]
     Active Substance: FOLIC ACID
  9. BACLOFEN. [Concomitant]
     Active Substance: BACLOFEN
  10. BENADRYL [Concomitant]
     Active Substance: DIPHENHYDRAMINE HYDROCHLORIDE
  11. ALEVE [Concomitant]
     Active Substance: NAPROXEN SODIUM

REACTIONS (5)
  - Restlessness [None]
  - Dry mouth [None]
  - Product substitution issue [None]
  - Hypersensitivity [None]
  - Photosensitivity reaction [None]

NARRATIVE: CASE EVENT DATE: 20160727
